FAERS Safety Report 24609160 (Version 1)
Quarter: 2024Q4

REPORT INFORMATION
  Report Type: Spontaneous
  Country: US (occurrence: US)
  Receive Date: 20241112
  Receipt Date: 20241112
  Transmission Date: 20250115
  Serious: Yes (Death, Life-Threatening, Hospitalization, Other)
  Sender: BRISTOL-MYERS SQUIBB COMPANY
  Company Number: US-MLMSERVICE-20241030-PI244778-00165-1

PATIENT
  Age: 48 Year
  Sex: Male

DRUGS (3)
  1. ABRAXANE [Suspect]
     Active Substance: PACLITAXEL
     Indication: Adenocarcinoma pancreas
     Dosage: COMPLETED 3 CYCLES  2 MONTHS BEFORE HIS PRESENTATION
  2. GEMCITABINE [Suspect]
     Active Substance: GEMCITABINE
     Indication: Adenocarcinoma pancreas
     Dosage: COMPLETED 3 CYCLES  2 MONTHS BEFORE HIS PRESENTATION
  3. OXYGEN [Concomitant]
     Active Substance: OXYGEN
     Indication: Emphysema
     Dosage: HOME OXYGEN THERAPY

REACTIONS (6)
  - Acute cholecystitis necrotic [Fatal]
  - Actinomycosis [Fatal]
  - Clostridium difficile infection [Fatal]
  - Klebsiella infection [Fatal]
  - Streptococcal infection [Fatal]
  - Bacterial infection [Fatal]
